APPROVED DRUG PRODUCT: PEMOLINE
Active Ingredient: PEMOLINE
Strength: 37.5MG
Dosage Form/Route: TABLET;ORAL
Application: A075726 | Product #002
Applicant: MALLINCKRODT INC
Approved: Mar 30, 2001 | RLD: No | RS: No | Type: DISCN